FAERS Safety Report 10093043 (Version 1)
Quarter: 2014Q2

REPORT INFORMATION
  Report Type: Spontaneous
  Country: US (occurrence: US)
  Receive Date: 20140421
  Receipt Date: 20140421
  Transmission Date: 20141212
  Serious: No
  Sender: FDA-Public Use
  Company Number: US-SA-2013SA105583

PATIENT
  Age: 54 Year
  Sex: Female

DRUGS (2)
  1. ALLEGRA [Suspect]
     Indication: EAR DISCOMFORT
     Dosage: TAKING ONLY ONE TABLET A DAY IN THE EVENING
     Route: 048
     Dates: start: 20131008
  2. ZYRTEC [Concomitant]

REACTIONS (4)
  - Headache [Not Recovered/Not Resolved]
  - Rash [Not Recovered/Not Resolved]
  - Erythema [Not Recovered/Not Resolved]
  - Acne [Not Recovered/Not Resolved]
